FAERS Safety Report 5121021-X (Version None)
Quarter: 2006Q4

REPORT INFORMATION
  Report Type: 
  Country: None (occurrence: None)
  Receive Date: 20061002
  Receipt Date: 20060922
  Transmission Date: 20070319
  Serious: Yes (Other)
  Sender: FDA-Public Use
  Company Number: 078-20785-06090962

PATIENT
  Age: 45 Year
  Sex: Female

DRUGS (4)
  1. THALOMID [Suspect]
     Indication: MULTIPLE MYELOMA
     Dosage: 200 MG, DAILY, ORAL  - 2 - 28 DAY CYCLES; 300 MG, DAILY, ORAL THIRD CYCLE, FOURTH CYCLE
     Route: 048
  2. DEXAMETHASON (DEXAMETHASONE) [Suspect]
     Indication: MULTIPLE MYELOMA
     Dosage: SEE IMAGE
  3. COTRIMOXAZOLE [Concomitant]
  4. LAMIVUDINE [Concomitant]

REACTIONS (5)
  - NEUROPATHY PERIPHERAL [None]
  - OPTIC NEURITIS RETROBULBAR [None]
  - PARANEOPLASTIC SYNDROME [None]
  - REVERSIBLE POSTERIOR LEUKOENCEPHALOPATHY SYNDROME [None]
  - VISUAL ACUITY REDUCED [None]
